FAERS Safety Report 6544519-6 (Version None)
Quarter: 2010Q1

REPORT INFORMATION
  Report Type: 
  Country: None (occurrence: None)
  Receive Date: 20100115
  Receipt Date: 20100111
  Transmission Date: 20100710
  Serious: Yes (Hospitalization)
  Sender: FDA-Public Use
  Company Number: 471345

PATIENT
  Age: 5 Year
  Sex: Female
  Weight: 23 kg

DRUGS (1)
  1. METHOTREXATE [Suspect]
     Indication: DRUG USE FOR UNKNOWN INDICATION
     Dosage: 4.1 G, 27 DAYS, INTRAVENOUS (NOT OTHERWISE SPECIFIED)
     Route: 042

REACTIONS (3)
  - BLOOD ALBUMIN ABNORMAL [None]
  - DRUG CLEARANCE DECREASED [None]
  - RENAL FAILURE ACUTE [None]
